FAERS Safety Report 5698021-4 (Version None)
Quarter: 2008Q2

REPORT INFORMATION
  Report Type: 
  Country: None (occurrence: None)
  Receive Date: 20080408
  Receipt Date: 20080331
  Transmission Date: 20081010
  Serious: Yes (Death, Life-Threatening, Hospitalization, Other)
  Sender: FDA-Public Use
  Company Number: FR-WYE-G01325908

PATIENT
  Sex: Female

DRUGS (12)
  1. EFFEXOR [Suspect]
     Dosage: UNKNOWN
     Route: 048
     Dates: end: 20080112
  2. KARDEGIC [Suspect]
     Route: 048
     Dates: start: 20080108, end: 20080111
  3. PREVISCAN [Suspect]
     Route: 048
     Dates: start: 20080108, end: 20080111
  4. AMLOR [Suspect]
     Route: 048
     Dates: end: 20080112
  5. ARIXTRA [Suspect]
     Route: 058
     Dates: start: 20080108, end: 20080110
  6. SPIRONOLACTONE [Suspect]
     Route: 048
     Dates: end: 20080112
  7. TRINIPATCH [Suspect]
     Route: 062
     Dates: end: 20080112
  8. ATORVASTATIN CALCIUM [Suspect]
     Route: 048
  9. OMEPRAZOLE [Suspect]
     Route: 048
  10. LASILIX [Concomitant]
     Dosage: UNKNOWN
     Route: 051
  11. PLAVIX [Suspect]
     Route: 048
     Dates: start: 20071231, end: 20080111
  12. KERLONE [Suspect]
     Route: 048
     Dates: end: 20080112

REACTIONS (10)
  - ANAEMIA [None]
  - FALL [None]
  - INTERNATIONAL NORMALISED RATIO INCREASED [None]
  - LEFT VENTRICULAR FAILURE [None]
  - MUSCLE HAEMORRHAGE [None]
  - SYNCOPE [None]
  - TROPONIN INCREASED [None]
  - VENTRICULAR FIBRILLATION [None]
  - VENTRICULAR HYPOKINESIA [None]
  - VENTRICULAR TACHYCARDIA [None]
